FAERS Safety Report 10255181 (Version 1)
Quarter: 2014Q2

REPORT INFORMATION
  Report Type: Spontaneous
  Country: GB (occurrence: GB)
  Receive Date: 20140624
  Receipt Date: 20140624
  Transmission Date: 20141212
  Serious: Yes (Death)
  Sender: FDA-Public Use
  Company Number: GB-JNJFOC-20140607934

PATIENT
  Sex: 0

DRUGS (20)
  1. DOXORUBICIN [Suspect]
     Indication: T-CELL LYMPHOMA
     Route: 042
  2. DOXORUBICIN [Suspect]
     Indication: HODGKIN^S DISEASE
     Route: 042
  3. DOXORUBICIN [Suspect]
     Indication: PLASMABLASTIC LYMPHOMA
     Route: 042
  4. DOXORUBICIN [Suspect]
     Indication: DIFFUSE LARGE B-CELL LYMPHOMA
     Route: 042
  5. RITUXIMAB [Suspect]
     Indication: T-CELL LYMPHOMA
     Route: 065
  6. RITUXIMAB [Suspect]
     Indication: HODGKIN^S DISEASE
     Route: 065
  7. RITUXIMAB [Suspect]
     Indication: PLASMABLASTIC LYMPHOMA
     Route: 065
  8. RITUXIMAB [Suspect]
     Indication: DIFFUSE LARGE B-CELL LYMPHOMA
     Route: 065
  9. CYCLOPHOSPHAMIDE [Suspect]
     Indication: T-CELL LYMPHOMA
     Route: 065
  10. CYCLOPHOSPHAMIDE [Suspect]
     Indication: HODGKIN^S DISEASE
     Route: 065
  11. CYCLOPHOSPHAMIDE [Suspect]
     Indication: PLASMABLASTIC LYMPHOMA
     Route: 065
  12. CYCLOPHOSPHAMIDE [Suspect]
     Indication: DIFFUSE LARGE B-CELL LYMPHOMA
     Route: 065
  13. PREDNISOLONE [Suspect]
     Indication: T-CELL LYMPHOMA
     Route: 065
  14. PREDNISOLONE [Suspect]
     Indication: HODGKIN^S DISEASE
     Route: 065
  15. PREDNISOLONE [Suspect]
     Indication: PLASMABLASTIC LYMPHOMA
     Route: 065
  16. PREDNISOLONE [Suspect]
     Indication: DIFFUSE LARGE B-CELL LYMPHOMA
     Route: 065
  17. VINCRISTINE [Suspect]
     Indication: T-CELL LYMPHOMA
     Route: 065
  18. VINCRISTINE [Suspect]
     Indication: HODGKIN^S DISEASE
     Route: 065
  19. VINCRISTINE [Suspect]
     Indication: PLASMABLASTIC LYMPHOMA
     Route: 065
  20. VINCRISTINE [Suspect]
     Indication: DIFFUSE LARGE B-CELL LYMPHOMA
     Route: 065

REACTIONS (1)
  - Death [Fatal]
